FAERS Safety Report 23114388 (Version 2)
Quarter: 2023Q4

REPORT INFORMATION
  Report Type: Spontaneous
  Country: DE (occurrence: DE)
  Receive Date: 20231027
  Receipt Date: 20231129
  Transmission Date: 20240110
  Serious: Yes (Other)
  Sender: FDA-Public Use
  Company Number: DE-ABBVIE-5447099

PATIENT
  Age: 38 Year
  Sex: Male
  Weight: 74 kg

DRUGS (2)
  1. HUMIRA [Suspect]
     Active Substance: ADALIMUMAB
     Indication: Crohn^s disease
     Dosage: UNK, SOLUTION FOR INJECTION
     Route: 058
     Dates: start: 2014
  2. HUMIRA [Suspect]
     Active Substance: ADALIMUMAB
     Dosage: 40 MILLIGRAM, Q2W,(SOLUTION FOR INJECTION)
     Route: 058
     Dates: start: 2014, end: 2019

REACTIONS (6)
  - Subileus [Recovered/Resolved]
  - Drug specific antibody present [Unknown]
  - Stenosis [Unknown]
  - Drug level decreased [Unknown]
  - Inflammation [Recovering/Resolving]
  - Drug ineffective [Unknown]

NARRATIVE: CASE EVENT DATE: 20190101
